FAERS Safety Report 11468300 (Version 1)
Quarter: 2015Q3

REPORT INFORMATION
  Report Type: Spontaneous
  Country: US (occurrence: None)
  Receive Date: 20150904
  Receipt Date: 20150904
  Transmission Date: 20151125
  Serious: Yes (Hospitalization)
  Sender: FDA-Public Use
  Company Number: None

PATIENT
  Age: 83 Year
  Sex: Male
  Weight: 95.26 kg

DRUGS (1)
  1. CEFEPIME [Suspect]
     Active Substance: CEFEPIME HYDROCHLORIDE
     Indication: URINARY TRACT INFECTION
     Dosage: HOSPITAL ADMINISTERED
     Dates: start: 20150824, end: 20150827

REACTIONS (5)
  - Agitation [None]
  - Myoclonus [None]
  - Perseveration [None]
  - Confusional state [None]
  - Unresponsive to stimuli [None]

NARRATIVE: CASE EVENT DATE: 20150825
